FAERS Safety Report 23183661 (Version 1)
Quarter: 2023Q4

REPORT INFORMATION
  Report Type: Other
  Country: None (occurrence: CN)
  Receive Date: 20231114
  Receipt Date: 20231114
  Transmission Date: 20240109
  Serious: Yes (Life-Threatening)
  Sender: FDA-Public Use
  Company Number: CN-B.Braun Medical Inc.-2148219

PATIENT
  Age: 47 Year
  Sex: Female

DRUGS (12)
  1. MANNITOL [Suspect]
     Active Substance: MANNITOL
     Indication: Brain oedema
  2. SODIUM CHLORIDE [Suspect]
     Active Substance: SODIUM CHLORIDE
  3. Total intravenous anesthesia (sufentanil, propofol, remifentanil, and [Concomitant]
  4. LIDOCAINE [Concomitant]
     Active Substance: LIDOCAINE
  5. EPINEPHRINE [Concomitant]
     Active Substance: EPINEPHRINE
  6. Diuretic (furosemide) [Concomitant]
  7. High-dose hormone ?(methylprednisolone) [Concomitant]
  8. Antioxidant (edaravone) [Concomitant]
  9. Neurotrophic drugs ?(gangliosides) [Concomitant]
  10. UNSPECIFIED INGREDIENT [Concomitant]
     Active Substance: UNSPECIFIED INGREDIENT
  11. Vasoactive drugs [Concomitant]
  12. VALPROIC ACID [Concomitant]
     Active Substance: VALPROIC ACID

REACTIONS (3)
  - Drug ineffective [None]
  - Hypokalaemia [None]
  - Condition aggravated [None]
